FAERS Safety Report 6003436-0 (Version None)
Quarter: 2008Q4

REPORT INFORMATION
  Report Type: 
  Country: None (occurrence: None)
  Receive Date: 20081215
  Receipt Date: 20081215
  Transmission Date: 20090506
  Serious: Yes (Other)
  Sender: FDA-Public Use
  Company Number: None

PATIENT
  Sex: Female
  Weight: 14.5151 kg

DRUGS (2)
  1. SINGULAIR [Suspect]
     Indication: ASTHMA
     Dosage: 4MG ONCE DAILY PO
     Route: 048
     Dates: start: 20060701, end: 20060701
  2. SINGULAIR [Suspect]
     Indication: SEASONAL ALLERGY
     Dosage: 4MG ONCE DAILY PO
     Route: 048
     Dates: start: 20060701, end: 20060701

REACTIONS (4)
  - ABNORMAL BEHAVIOUR [None]
  - BELLIGERENCE [None]
  - DRUG INEFFECTIVE [None]
  - PERSONALITY CHANGE [None]
